FAERS Safety Report 4917894-3 (Version None)
Quarter: 2006Q1

REPORT INFORMATION
  Report Type: 
  Country: None (occurrence: None)
  Receive Date: 20060215
  Receipt Date: 20060202
  Transmission Date: 20060701
  Serious: Yes (Other)
  Sender: FDA-Public Use
  Company Number: 2006017123

PATIENT
  Sex: Male
  Weight: 64.8644 kg

DRUGS (8)
  1. VIAGRA [Suspect]
     Indication: ERECTILE DYSFUNCTION
     Dosage: 25 MG (25 MG)
     Dates: start: 20050101, end: 20050101
  2. PLETAL [Concomitant]
  3. COLACE (DOCUSATE SODIUM) [Concomitant]
  4. PRANDIN [Concomitant]
  5. CAPOTEN [Concomitant]
  6. HYDROCHLOROTHIAZIDE [Concomitant]
  7. ISOSORBIDE (ISOSORBIDE) [Concomitant]
  8. ECOTRIN (ACETYLSALICYLIC ACID) [Concomitant]

REACTIONS (3)
  - DRUG INEFFECTIVE [None]
  - PENIS DISORDER [None]
  - SCAR [None]
